FAERS Safety Report 8837105 (Version 1)
Quarter: 2012Q4

REPORT INFORMATION
  Report Type: Spontaneous
  Country: US (occurrence: None)
  Receive Date: 20121011
  Receipt Date: 20121011
  Transmission Date: 20130627
  Serious: Yes (Disabling, Other)
  Sender: FDA-Public Use
  Company Number: None

PATIENT
  Age: 37 Year
  Sex: Female
  Weight: 54.43 kg

DRUGS (2)
  1. KENALOG-40 [Suspect]
     Dates: start: 20120521, end: 20120807
  2. KENALOG-40 [Suspect]
     Dates: start: 20120807, end: 20120810

REACTIONS (3)
  - Atrophy [None]
  - Depression [None]
  - Suicidal ideation [None]
